FAERS Safety Report 5708357-6 (Version None)
Quarter: 2008Q2

REPORT INFORMATION
  Report Type: 
  Country: None (occurrence: None)
  Receive Date: 20080417
  Receipt Date: 20080408
  Transmission Date: 20081010
  Serious: Yes (Hospitalization)
  Sender: FDA-Public Use
  Company Number: NL-PFIZER INC-2008031214

PATIENT
  Sex: Female
  Weight: 99 kg

DRUGS (4)
  1. CELEBREX [Suspect]
     Indication: BACK PAIN
     Route: 048
  2. AMITRIPTYLINE HCL [Suspect]
     Indication: BACK PAIN
     Route: 048
     Dates: start: 20080118, end: 20080318
  3. PARACETAMOL [Concomitant]
  4. ASCAL CARDIO [Concomitant]

REACTIONS (5)
  - BLOOD PRESSURE FLUCTUATION [None]
  - DIZZINESS [None]
  - FLATULENCE [None]
  - HYPERVENTILATION [None]
  - PALPITATIONS [None]
